FAERS Safety Report 4861665-3 (Version None)
Quarter: 2005Q4

REPORT INFORMATION
  Report Type: 
  Country: None (occurrence: None)
  Receive Date: 20051129
  Receipt Date: 20050817
  Transmission Date: 20060501
  Serious: Yes (Life-Threatening, Hospitalization, Other)
  Sender: FDA-Public Use
  Company Number: WAES 0508USA03111

PATIENT
  Age: 70 Year
  Sex: Male
  Weight: 101.6057 kg

DRUGS (10)
  1. VYTORIN [Suspect]
     Indication: HYPERLIPIDAEMIA
     Dosage: 10-40 MG DAILY/PO
     Route: 048
     Dates: start: 20050207, end: 20050717
  2. NEORAL [Suspect]
     Dosage: 100 MG / Q 12 H/ PO
     Route: 048
     Dates: start: 20000206
  3. LOPID [Suspect]
     Dosage: 600 MG / BID / PO
     Route: 048
     Dates: end: 20050701
  4. CARDURA [Concomitant]
  5. COLACE [Concomitant]
  6. DIOVAN [Concomitant]
  7. GLUCOTROL [Concomitant]
  8. THERAPY UNSPECIFIED [Concomitant]
  9. ASPIRIN [Concomitant]
  10. CALCIUM CARBONATE [Concomitant]

REACTIONS (8)
  - ABDOMINAL HERNIA [None]
  - DRUG INTERACTION [None]
  - LIVER FUNCTION TEST ABNORMAL [None]
  - LOCAL SWELLING [None]
  - RENAL FAILURE [None]
  - RHABDOMYOLYSIS [None]
  - SWOLLEN TONGUE [None]
  - WEIGHT DECREASED [None]
